FAERS Safety Report 7899145 (Version 3)
Quarter: 2012Q4

REPORT INFORMATION
  Report Type: Report from Study
  Country: BE (occurrence: BE)
  Receive Date: 20110414
  Receipt Date: 20121226
  Transmission Date: 20130627
  Serious: Yes (Hospitalization)
  Sender: FDA-Public Use
  Company Number: PHHO2011BE05825

PATIENT
  Sex: Male

DRUGS (3)
  1. EVEROLIMUS [Suspect]
     Indication: RENAL TRANSPLANT
     Dosage: 3.5 mg, UNK
     Route: 048
     Dates: start: 20100903, end: 20101216
  2. MYFORTIC [Concomitant]
     Indication: IMMUNOSUPPRESSANT DRUG THERAPY
     Dosage: 1080 mg, QD
     Route: 048
     Dates: start: 20081214
  3. MEDROL [Concomitant]
     Indication: IMMUNOSUPPRESSANT DRUG THERAPY
     Dosage: 4 mg, QD
     Route: 048
     Dates: start: 20090213

REACTIONS (8)
  - Respiratory failure [Recovering/Resolving]
  - Septic shock [Recovering/Resolving]
  - Lung infiltration [Recovering/Resolving]
  - Diarrhoea [Recovering/Resolving]
  - Pleural effusion [Recovered/Resolved]
  - Pyrexia [Recovered/Resolved]
  - Dyspnoea exertional [Recovered/Resolved]
  - Bladder pain [Recovered/Resolved]
